FAERS Safety Report 12459799 (Version 5)
Quarter: 2017Q2

REPORT INFORMATION
  Report Type: Spontaneous
  Country: CA (occurrence: CA)
  Receive Date: 20160613
  Receipt Date: 20170418
  Transmission Date: 20170830
  Serious: Yes (Life-Threatening, Hospitalization, Other)
  Sender: FDA-Public Use
  Company Number: CA-APOTEX-2016AP008946

PATIENT
  Age: 42 Year
  Sex: Male

DRUGS (29)
  1. TOBRAMYCIN. [Suspect]
     Active Substance: TOBRAMYCIN
     Dosage: UNK
     Route: 050
  2. VANCOMYCIN [Suspect]
     Active Substance: VANCOMYCIN
     Indication: INFECTIVE PULMONARY EXACERBATION OF CYSTIC FIBROSIS
     Dosage: UNK
     Route: 042
  3. XOLAIR [Concomitant]
     Active Substance: OMALIZUMAB
     Indication: PRODUCT USED FOR UNKNOWN INDICATION
     Dosage: UNK
     Route: 065
  4. INSULIN [Concomitant]
     Active Substance: INSULIN NOS
     Indication: DRUG THERAPY
     Route: 065
  5. APO-CIPROFLOX [Suspect]
     Active Substance: CIPROFLOXACIN
     Indication: INFLUENZA LIKE ILLNESS
     Dosage: UNK
     Route: 048
  6. MEROPENEM. [Suspect]
     Active Substance: MEROPENEM
     Indication: INFECTIVE PULMONARY EXACERBATION OF CYSTIC FIBROSIS
     Dosage: UNK
     Route: 042
  7. VANCOMYCIN [Suspect]
     Active Substance: VANCOMYCIN
     Indication: CONDITION AGGRAVATED
  8. APO-CIPROFLOX [Suspect]
     Active Substance: CIPROFLOXACIN
     Indication: INFECTIVE PULMONARY EXACERBATION OF CYSTIC FIBROSIS
     Dosage: UNK
     Route: 048
  9. MEROPENEM. [Suspect]
     Active Substance: MEROPENEM
     Indication: CONDITION AGGRAVATED
  10. PANCRELIPASE. [Concomitant]
     Active Substance: PANCRELIPASE
     Indication: PRODUCT USED FOR UNKNOWN INDICATION
     Dosage: UNK
     Route: 065
  11. TOBRAMYCIN. [Suspect]
     Active Substance: TOBRAMYCIN
     Indication: INFECTIVE PULMONARY EXACERBATION OF CYSTIC FIBROSIS
     Dosage: UNK
     Route: 042
  12. OSELTAMIVIR [Suspect]
     Active Substance: OSELTAMIVIR
     Indication: INFLUENZA LIKE ILLNESS
     Dosage: UNK
     Route: 048
  13. OSELTAMIVIR [Suspect]
     Active Substance: OSELTAMIVIR
     Indication: INFECTIVE PULMONARY EXACERBATION OF CYSTIC FIBROSIS
  14. SALINE                             /00075401/ [Concomitant]
     Active Substance: SODIUM CHLORIDE
     Indication: PRODUCT USED FOR UNKNOWN INDICATION
     Route: 065
  15. BUDESONIDE. [Concomitant]
     Active Substance: BUDESONIDE
     Indication: PRODUCT USED FOR UNKNOWN INDICATION
     Dosage: UNK
     Route: 065
  16. MONTELUKAST [Concomitant]
     Active Substance: MONTELUKAST SODIUM
     Indication: DRUG THERAPY
     Route: 065
  17. OMALIZUMAB [Concomitant]
     Active Substance: OMALIZUMAB
     Indication: DRUG THERAPY
     Route: 065
  18. TAMIFLU [Suspect]
     Active Substance: OSELTAMIVIR PHOSPHATE
     Indication: INFLUENZA LIKE ILLNESS
     Dosage: UNK
     Route: 048
  19. CICLESONIDE [Concomitant]
     Active Substance: CICLESONIDE
     Indication: DRUG THERAPY
     Route: 065
  20. AZTREONAM. [Concomitant]
     Active Substance: AZTREONAM
     Indication: DRUG THERAPY
     Dosage: ALTERING EVERY OTHER MONTH WITH TOBRAMYCIN VIA INHALATION
     Route: 050
  21. APO-CIPROFLOX [Suspect]
     Active Substance: CIPROFLOXACIN
     Indication: CONDITION AGGRAVATED
  22. VITAMINS NOS [Concomitant]
     Active Substance: VITAMINS
     Indication: PRODUCT USED FOR UNKNOWN INDICATION
     Dosage: UNK
     Route: 065
  23. BUDESONIDE W/FORMOTEROL [Concomitant]
     Active Substance: BUDESONIDE\FORMOTEROL
     Indication: DRUG THERAPY
     Route: 065
  24. HYDROCORTISONE. [Concomitant]
     Active Substance: HYDROCORTISONE
     Indication: DRUG THERAPY
     Route: 065
  25. TOBRAMYCIN. [Suspect]
     Active Substance: TOBRAMYCIN
     Indication: CONDITION AGGRAVATED
     Dosage: UNK
     Route: 042
  26. AZITHROMYCIN ANHYDROUS. [Concomitant]
     Active Substance: AZITHROMYCIN ANHYDROUS
     Indication: DRUG THERAPY
     Route: 065
  27. CAYSTON [Concomitant]
     Active Substance: AZTREONAM
     Indication: PRODUCT USED FOR UNKNOWN INDICATION
     Dosage: UNK
     Route: 065
  28. DORNAVAC [Concomitant]
     Indication: PRODUCT USED FOR UNKNOWN INDICATION
     Dosage: UNK
     Route: 065
  29. DORNASE ALFA [Concomitant]
     Active Substance: DORNASE ALFA
     Indication: DRUG THERAPY
     Route: 065

REACTIONS (8)
  - Rash erythematous [Unknown]
  - Blister [Unknown]
  - Staphylococcal infection [Unknown]
  - Rash morbilliform [Unknown]
  - Toxic epidermal necrolysis [Unknown]
  - Sepsis [Unknown]
  - Rash pruritic [Unknown]
  - Rash maculo-papular [Unknown]
